FAERS Safety Report 11383062 (Version 1)
Quarter: 2015Q3

REPORT INFORMATION
  Report Type: Spontaneous
  Country: TR (occurrence: TR)
  Receive Date: 20150814
  Receipt Date: 20150814
  Transmission Date: 20151125
  Serious: Yes (Other)
  Sender: FDA-Public Use
  Company Number: TR-FRESENIUS KABI-FK201503905

PATIENT
  Age: 3 Year
  Sex: Female

DRUGS (5)
  1. METHOTREXATE (MANUFACTURER UNKNOWN) [Suspect]
     Active Substance: METHOTREXATE
     Indication: ACUTE LYMPHOCYTIC LEUKAEMIA
     Route: 037
  2. MERCAPTOPURINE (MANUFACTURER UNKNOWN) [Suspect]
     Active Substance: MERCAPTOPURINE
     Indication: ACUTE LYMPHOCYTIC LEUKAEMIA
     Route: 065
  3. VINCRISTINE [Suspect]
     Active Substance: VINCRISTINE
     Indication: ACUTE LYMPHOCYTIC LEUKAEMIA
  4. CYCLOPHOSPHAMIDE (MANUFACTURER UNKNOWN) [Suspect]
     Active Substance: CYCLOPHOSPHAMIDE
     Indication: ACUTE LYMPHOCYTIC LEUKAEMIA
     Route: 065
  5. CYTARABINE (MANUFACTURER UNKNOWN) [Suspect]
     Active Substance: CYTARABINE
     Indication: ACUTE LYMPHOCYTIC LEUKAEMIA
     Route: 065

REACTIONS (1)
  - Eyelid ptosis [Recovered/Resolved]
